FAERS Safety Report 25795861 (Version 1)
Quarter: 2025Q3

REPORT INFORMATION
  Report Type: Spontaneous
  Country: US (occurrence: None)
  Receive Date: 20250911
  Receipt Date: 20250911
  Transmission Date: 20251020
  Serious: Yes (Other)
  Sender: FDA-CTU
  Company Number: None

PATIENT
  Age: 79 Year
  Sex: Female
  Weight: 51.8 kg

DRUGS (3)
  1. VENCLEXTA [Suspect]
     Active Substance: VENETOCLAX
     Dosage: FREQUENCY : DAILY;?
     Route: 048
  2. VENCLEXTA [Concomitant]
     Active Substance: VENETOCLAX
     Dates: start: 20241120
  3. TYMLOS [Concomitant]
     Active Substance: ABALOPARATIDE
     Dates: start: 20250911

REACTIONS (3)
  - Compression fracture [None]
  - Gastrointestinal disorder [None]
  - Hypocalcaemia [None]

NARRATIVE: CASE EVENT DATE: 20250911
